FAERS Safety Report 7333325-0 (Version None)
Quarter: 2011Q1

REPORT INFORMATION
  Report Type: 
  Country: None (occurrence: None)
  Receive Date: 20110304
  Receipt Date: 20110207
  Transmission Date: 20110831
  Serious: No
  Sender: FDA-Public Use
  Company Number: US-B.I. PHARMACEUTICALS,INC./RIDGEFIELD-2011-BP-03844BP

PATIENT
  Sex: Female

DRUGS (2)
  1. AMIODARONE HCL [Suspect]
     Indication: HEART RATE IRREGULAR
     Route: 048
     Dates: start: 20110131
  2. PRADAXA [Suspect]
     Indication: ATRIAL FIBRILLATION
     Dosage: 300 MG
     Route: 048
     Dates: start: 20110131

REACTIONS (4)
  - HEADACHE [None]
  - GINGIVAL ULCERATION [None]
  - NAUSEA [None]
  - DYSGEUSIA [None]
